FAERS Safety Report 5448392-9 (Version None)
Quarter: 2007Q3

REPORT INFORMATION
  Report Type: 
  Country: None (occurrence: None)
  Receive Date: 20070905
  Receipt Date: 20070820
  Transmission Date: 20080115
  Serious: Yes (Hospitalization, Disabling)
  Sender: FDA-Public Use
  Company Number: DSA_30046_2007

PATIENT
  Sex: Female

DRUGS (1)
  1. ATIVAN [Suspect]
     Indication: DRUG USE FOR UNKNOWN INDICATION
     Dosage: (DF)
     Dates: start: 20031001, end: 20050101

REACTIONS (19)
  - AGGRESSION [None]
  - AGITATION [None]
  - ASPIRATION [None]
  - CHOKING [None]
  - CONFUSIONAL STATE [None]
  - FEAR [None]
  - HALLUCINATION [None]
  - HOSTILITY [None]
  - LOSS OF CONSCIOUSNESS [None]
  - PHARYNGEAL DISORDER [None]
  - PSYCHOMOTOR HYPERACTIVITY [None]
  - RESPIRATION ABNORMAL [None]
  - RESPIRATORY FAILURE [None]
  - SCREAMING [None]
  - SOMNOLENCE [None]
  - THROAT TIGHTNESS [None]
  - TONGUE DISORDER [None]
  - TONGUE DRY [None]
  - WEIGHT DECREASED [None]
